FAERS Safety Report 20152259 (Version 1)
Quarter: 2021Q4

REPORT INFORMATION
  Report Type: Spontaneous
  Country: US (occurrence: None)
  Receive Date: 20211205
  Receipt Date: 20211205
  Transmission Date: 20220303
  Serious: No
  Sender: FDA-Public Use
  Company Number: None

PATIENT
  Age: 56 Year
  Sex: Female
  Weight: 58.5 kg

DRUGS (5)
  1. ARMOUR THYROID [Suspect]
     Active Substance: THYROID, PORCINE
     Indication: Post procedural hypothyroidism
     Dosage: OTHER QUANTITY : 1 TABLET(S);?FREQUENCY : DAILY;?
     Route: 048
  2. SYNTHROID [Concomitant]
     Active Substance: LEVOTHYROXINE SODIUM
  3. DEPLIN [Concomitant]
     Active Substance: LEVOMEFOLATE CALCIUM
  4. IPRATROPIUM BROMIDE [Concomitant]
     Active Substance: IPRATROPIUM BROMIDE
  5. KETAMINE [Concomitant]
     Active Substance: KETAMINE

REACTIONS (8)
  - Product substitution issue [None]
  - Thyroid function test abnormal [None]
  - Disease recurrence [None]
  - Blood thyroid stimulating hormone increased [None]
  - Asthenia [None]
  - Exercise tolerance decreased [None]
  - Loss of personal independence in daily activities [None]
  - Anxiety [None]

NARRATIVE: CASE EVENT DATE: 20210623
